FAERS Safety Report 4593573-X (Version None)
Quarter: 2005Q1

REPORT INFORMATION
  Report Type: 
  Country: None (occurrence: None)
  Receive Date: 20050224
  Receipt Date: 20040816
  Transmission Date: 20050727
  Serious: No
  Sender: FDA-Public Use
  Company Number: US-BRISTOL-MYERS SQUIBB COMPANY-12699716

PATIENT
  Sex: Male

DRUGS (1)
  1. EXCEDRIN (MIGRAINE) [Suspect]
     Dosage: TAKES 2 GELTABS EVERY MORNING.  SOMETIMES TAKES UP TO 8 TABS PER 24 HOURS.
     Route: 048

REACTIONS (2)
  - MEDICATION ERROR [None]
  - OFF LABEL USE [None]
